FAERS Safety Report 25487396 (Version 1)
Quarter: 2025Q2

REPORT INFORMATION
  Report Type: Spontaneous
  Country: JP (occurrence: JP)
  Receive Date: 20250627
  Receipt Date: 20250627
  Transmission Date: 20250717
  Serious: Yes (Death, Other)
  Sender: NOVARTIS
  Company Number: JP-002147023-NVSJ2025JP006718

PATIENT
  Age: 74 Year

DRUGS (4)
  1. TAFINLAR [Suspect]
     Active Substance: DABRAFENIB MESYLATE
     Indication: Lung neoplasm malignant
     Route: 048
     Dates: start: 20231115, end: 20240619
  2. TAFINLAR [Suspect]
     Active Substance: DABRAFENIB MESYLATE
     Indication: BRAF V600E mutation positive
  3. MEKINIST [Suspect]
     Active Substance: TRAMETINIB DIMETHYL SULFOXIDE
     Indication: Lung neoplasm malignant
     Route: 048
     Dates: start: 20231115, end: 20240619
  4. MEKINIST [Suspect]
     Active Substance: TRAMETINIB DIMETHYL SULFOXIDE
     Indication: BRAF V600E mutation positive

REACTIONS (7)
  - Metastases to peritoneum [Fatal]
  - Duodenal stenosis [Fatal]
  - Lung neoplasm malignant [Fatal]
  - General physical health deterioration [Fatal]
  - Malignant neoplasm progression [Fatal]
  - Deep vein thrombosis [Unknown]
  - Pulmonary artery thrombosis [Unknown]
